FAERS Safety Report 8485101-3 (Version None)
Quarter: 2012Q3

REPORT INFORMATION
  Report Type: 
  Country: None (occurrence: None)
  Receive Date: 20120703
  Receipt Date: 20120625
  Transmission Date: 20120928
  Serious: Yes (Hospitalization)
  Sender: FDA-Public Use
  Company Number: US-BAYER-2012-064661

PATIENT
  Age: 31 Year
  Sex: Female
  Weight: 113.33 kg

DRUGS (14)
  1. YAZ [Suspect]
     Indication: CONTRACEPTION
  2. FLONASE [Concomitant]
     Dosage: 50 MCG, 2 SPRAYS EACH NOSTRIL
     Dates: start: 20120112
  3. MEDROL [Concomitant]
  4. NSAID'S [Concomitant]
     Dosage: UNK UNK, PRN
     Dates: start: 20120224
  5. DROSPIRENONE AND ETHINYL ESTRADIOL [Suspect]
  6. ULTRAM [Concomitant]
     Dosage: 50 MG, 1 TABLET EVERY 6 HOURS
     Dates: start: 20120224
  7. EFFEXOR [Concomitant]
  8. PROBIOTICS [Concomitant]
  9. FLEXERIL [Concomitant]
     Dosage: 10 MG, TID
  10. DROSPIRENONE AND ETHINYL ESTRADIOL [Suspect]
     Indication: CONTRACEPTION
  11. PROMETHAZINE [Concomitant]
     Dosage: 25 MG, UNK
     Dates: start: 20111223
  12. NAPROSYN [Concomitant]
     Dosage: 500 MG, UNK
     Dates: start: 20120208
  13. METHYLPREDNISOLONE [Concomitant]
     Dosage: 4 MG, UNK
     Dates: start: 20120208
  14. VENLAFAXINE [Concomitant]
     Dosage: 75 MG, UNK
     Dates: start: 20120216

REACTIONS (2)
  - PULMONARY EMBOLISM [None]
  - DEEP VEIN THROMBOSIS [None]
